FAERS Safety Report 4847672-5 (Version None)
Quarter: 2005Q4

REPORT INFORMATION
  Report Type: 
  Country: None (occurrence: None)
  Receive Date: 20051205
  Receipt Date: 20051121
  Transmission Date: 20060501
  Serious: Yes (Other)
  Sender: FDA-Public Use
  Company Number: 2004106358

PATIENT
  Age: 39 Year
  Sex: Female

DRUGS (10)
  1. LYRICA [Suspect]
     Indication: PAIN
     Dosage: UNKNOWN
     Route: 065
     Dates: start: 20041105, end: 20041216
  2. ESTRADIOL [Concomitant]
  3. ACETAMINOPHEN W/ CODEINE [Concomitant]
  4. CYCLIZINE (CYCLIZINE) [Concomitant]
  5. GABAPENTIN (ESTRADIOL) [Concomitant]
  6. BENDROFLUAZIDE (BENDROFLUMETHIAZIDE) [Concomitant]
  7. ATENOLOL [Concomitant]
  8. HALOPERIDOL [Concomitant]
  9. OXYBUTYNIN CHLORIDE [Concomitant]
  10. PERINDOPRIL (PERINDOPRIL) [Concomitant]

REACTIONS (4)
  - COORDINATION ABNORMAL [None]
  - DIARRHOEA [None]
  - INCREASED TENDENCY TO BRUISE [None]
  - RECTAL HAEMORRHAGE [None]
